FAERS Safety Report 8005945-1 (Version None)
Quarter: 2011Q4

REPORT INFORMATION
  Report Type: 
  Country: None (occurrence: None)
  Receive Date: 20111223
  Receipt Date: 20070124
  Transmission Date: 20120403
  Serious: Yes (Hospitalization)
  Sender: FDA-Public Use
  Company Number: PHHY2007FR011561

PATIENT
  Sex: Female

DRUGS (1)
  1. EXELON [Suspect]

REACTIONS (1)
  - FEMORAL NECK FRACTURE [None]
